FAERS Safety Report 6097136-9 (Version None)
Quarter: 2009Q1

REPORT INFORMATION
  Report Type: 
  Country: None (occurrence: None)
  Receive Date: 20090227
  Receipt Date: 20090217
  Transmission Date: 20090719
  Serious: Yes (Hospitalization)
  Sender: FDA-Public Use
  Company Number: DE-ABBOTT-09P-062-0558165-00

PATIENT
  Sex: Male
  Weight: 110 kg

DRUGS (1)
  1. HUMIRA [Suspect]
     Indication: PSORIATIC ARTHROPATHY
     Route: 058
     Dates: start: 20060407, end: 20090101

REACTIONS (2)
  - METASTASES TO LYMPH NODES [None]
  - SQUAMOUS CELL CARCINOMA [None]
